FAERS Safety Report 6861095-9 (Version None)
Quarter: 2010Q3

REPORT INFORMATION
  Report Type: 
  Country: None (occurrence: None)
  Receive Date: 20100720
  Receipt Date: 20100707
  Transmission Date: 20110219
  Serious: Yes (Other)
  Sender: FDA-Public Use
  Company Number: JP-ASTRAZENECA-2010SE31338

PATIENT
  Age: 61 Year
  Sex: Female
  Weight: 42 kg

DRUGS (7)
  1. PROPOFOL [Suspect]
     Indication: INDUCTION OF ANAESTHESIA
     Dosage: TARGET BLOOD CONCENTRATION 4.0 UG/ML
     Route: 042
  2. PROPOFOL [Suspect]
     Dosage: 3 UG/KG/MIN
     Route: 042
  3. FENTANYL [Suspect]
     Indication: INDUCTION OF ANAESTHESIA
  4. FENTANYL [Suspect]
  5. FENTANYL [Suspect]
     Dosage: INTRAOPERATIVLE TOTAL DOSE OF 950 UG WAS USED
  6. LIDOCAINE [Concomitant]
     Indication: LOCAL ANAESTHESIA
     Dosage: 6 ML
  7. DOXAZOSIN [Concomitant]
     Indication: ADRENAL BLOCKADE THERAPY
     Dosage: FROM 0.25 MG UP TO 0.5 MG PER DAY

REACTIONS (1)
  - PROCEDURAL HYPOTENSION [None]
